FAERS Safety Report 4720285-1 (Version None)
Quarter: 2005Q3

REPORT INFORMATION
  Report Type: 
  Country: None (occurrence: None)
  Receive Date: 20050721
  Receipt Date: 20030605
  Transmission Date: 20060218
  Serious: Yes (Hospitalization, Other)
  Sender: FDA-Public Use
  Company Number: US-MERCK-0306USA00717

PATIENT
  Age: 57 Year
  Sex: Female

DRUGS (7)
  1. VIOXX [Suspect]
     Indication: OSTEOARTHRITIS
     Route: 048
     Dates: start: 20000301
  2. LIPITOR [Concomitant]
     Indication: BLOOD CHOLESTEROL INCREASED
     Route: 065
  3. LEVOTHYROXINE SODIUM [Concomitant]
     Indication: HYPOTHYROIDISM
     Route: 065
  4. PREVACID [Concomitant]
     Route: 065
  5. ESTRATEST [Concomitant]
     Route: 065
  6. VICODIN [Concomitant]
     Route: 065
  7. FLUOXETINE HYDROCHLORIDE [Concomitant]
     Route: 065

REACTIONS (58)
  - ABDOMINAL PAIN [None]
  - ABDOMINAL PAIN UPPER [None]
  - ACROCHORDON [None]
  - ADHESION [None]
  - ANGINA PECTORIS [None]
  - ARTHRALGIA [None]
  - AUTONOMIC NEUROPATHY [None]
  - BACK PAIN [None]
  - BLOOD PRESSURE INCREASED [None]
  - BRONCHITIS [None]
  - BURSITIS [None]
  - CAROTID ARTERY STENOSIS [None]
  - CARPAL TUNNEL DECOMPRESSION [None]
  - CHEST PAIN [None]
  - CHEST WALL PAIN [None]
  - CHRONIC SINUSITIS [None]
  - CONVULSION [None]
  - COUGH [None]
  - CUBITAL TUNNEL SYNDROME [None]
  - DECREASED ACTIVITY [None]
  - DIASTOLIC DYSFUNCTION [None]
  - DIVERTICULUM [None]
  - DIZZINESS [None]
  - DYSPNOEA [None]
  - DYSPNOEA EXERTIONAL [None]
  - ESSENTIAL TREMOR [None]
  - FALL [None]
  - FIBROMYALGIA [None]
  - FLANK PAIN [None]
  - FOLLICULITIS [None]
  - GASTROENTERITIS [None]
  - HEADACHE [None]
  - HYPERGLYCAEMIA [None]
  - JOINT CONTRACTURE [None]
  - KIDNEY INFECTION [None]
  - LIBIDO DECREASED [None]
  - MEMORY IMPAIRMENT [None]
  - MUSCLE SPASMS [None]
  - MYALGIA [None]
  - NAUSEA [None]
  - NEPHROLITHIASIS [None]
  - NEUROPATHY PERIPHERAL [None]
  - NON-CARDIAC CHEST PAIN [None]
  - OEDEMA PERIPHERAL [None]
  - ORTHOSTATIC HYPOTENSION [None]
  - OTITIS MEDIA ACUTE [None]
  - PAIN IN EXTREMITY [None]
  - PRURITUS [None]
  - PYREXIA [None]
  - RESTLESS LEGS SYNDROME [None]
  - RHINITIS ALLERGIC [None]
  - SCIATICA [None]
  - SKIN LESION [None]
  - SYNCOPE [None]
  - TRANSIENT ISCHAEMIC ATTACK [None]
  - UPPER RESPIRATORY TRACT INFECTION [None]
  - URINARY TRACT INFECTION [None]
  - VISUAL ACUITY REDUCED [None]
